FAERS Safety Report 15555283 (Version 2)
Quarter: 2018Q4

REPORT INFORMATION
  Report Type: Other
  Country: NL (occurrence: NL)
  Receive Date: 20181026
  Receipt Date: 20181102
  Transmission Date: 20190205
  Serious: Yes (Other)
  Sender: FDA-Public Use
  Company Number: NL-ASTELLAS-2018US045337

PATIENT
  Age: 11 Year
  Sex: Male
  Weight: 30 kg

DRUGS (5)
  1. PROGRAFT [Interacting]
     Active Substance: TACROLIMUS
     Dosage: UNK UNK, UNKNOWN FREQ.
     Route: 065
  2. PROGRAFT [Suspect]
     Active Substance: TACROLIMUS
     Indication: PROPHYLAXIS AGAINST TRANSPLANT REJECTION
     Route: 065
     Dates: start: 20180712
  3. EVEROLIMUS. [Interacting]
     Active Substance: EVEROLIMUS
     Indication: PROPHYLAXIS AGAINST TRANSPLANT REJECTION
     Dosage: 2 DD 1,75 MG (STREEF 4-6 UG/L)
     Route: 065
     Dates: start: 20180712
  4. EVEROLIMUS. [Interacting]
     Active Substance: EVEROLIMUS
     Dosage: UNK UNK, UNKNOWN FREQ.
     Route: 065
  5. FLOXAPEN                           /00239102/ [Interacting]
     Active Substance: FLUCLOXACILLIN
     Indication: URINARY TRACT INFECTION
     Route: 065
     Dates: start: 20180914, end: 20180924

REACTIONS (2)
  - Drug interaction [Recovered/Resolved]
  - Immunosuppressant drug level decreased [Recovered/Resolved]

NARRATIVE: CASE EVENT DATE: 20180917
